FAERS Safety Report 11414742 (Version 1)
Quarter: 2015Q3

REPORT INFORMATION
  Report Type: Spontaneous
  Country: SE (occurrence: SE)
  Receive Date: 20150825
  Receipt Date: 20150825
  Transmission Date: 20151125
  Serious: Yes (Life-Threatening, Hospitalization)
  Sender: FDA-Public Use
  Company Number: SE-009507513-1508SWE009551

PATIENT
  Age: 48 Year
  Sex: Female

DRUGS (8)
  1. MATRIFEN [Concomitant]
     Active Substance: FENTANYL
  2. BRICANYL [Concomitant]
     Active Substance: TERBUTALINE SULFATE
  3. MORPHINE [Concomitant]
     Active Substance: MORPHINE
  4. DAPTOMYCIN. [Suspect]
     Active Substance: DAPTOMYCIN
     Indication: DEVICE RELATED INFECTION
     Dosage: 875 MG, QD
     Route: 042
     Dates: start: 20150608, end: 20150616
  5. CIPROXIN (CIPROFLOXACIN) [Concomitant]
     Active Substance: CIPROFLOXACIN
  6. ALVEDON [Concomitant]
     Active Substance: ACETAMINOPHEN
  7. STILNOCT [Concomitant]
     Active Substance: ZOLPIDEM TARTRATE
  8. HIPREX [Concomitant]
     Active Substance: METHENAMINE HIPPURATE

REACTIONS (2)
  - Myositis [Recovered/Resolved]
  - Rhabdomyolysis [Recovered/Resolved]

NARRATIVE: CASE EVENT DATE: 20150616
